FAERS Safety Report 17861723 (Version 1)
Quarter: 2020Q2

REPORT INFORMATION
  Report Type: Spontaneous
  Country: US (occurrence: US)
  Receive Date: 20200604
  Receipt Date: 20200604
  Transmission Date: 20200714
  Serious: No
  Sender: FDA-Public Use
  Company Number: US-009507513-2006USA000694

PATIENT
  Sex: Female
  Weight: 54.88 kg

DRUGS (2)
  1. NEXPLANON [Suspect]
     Active Substance: ETONOGESTREL
     Indication: CONTRACEPTION
     Dosage: 1 IMPLANT/YEARS
     Route: 059
     Dates: start: 20200601
  2. LIDOCAINE. [Suspect]
     Active Substance: LIDOCAINE
     Dosage: UNK
     Dates: start: 20200601

REACTIONS (2)
  - Implant site swelling [Recovering/Resolving]
  - Complication associated with device [Recovering/Resolving]

NARRATIVE: CASE EVENT DATE: 20200601
